FAERS Safety Report 9633606 (Version 4)
Quarter: 2014Q1

REPORT INFORMATION
  Report Type: Report from Study
  Country: US (occurrence: US)
  Receive Date: 20131021
  Receipt Date: 20140213
  Transmission Date: 20141002
  Serious: No
  Sender: FDA-Public Use
  Company Number: PHEH2013US021528

PATIENT
  Sex: Male

DRUGS (7)
  1. TASIGNA [Suspect]
     Indication: ACUTE MYELOID LEUKAEMIA (IN REMISSION)
     Dosage: 400 MG, BID
     Route: 048
     Dates: start: 20130918, end: 20140108
  2. CENTRUM [Concomitant]
     Dosage: UNK UKN, UNK
  3. ONDANSETRON HCL [Concomitant]
     Dosage: UNK UKN, UNK
  4. SYMBICORT [Concomitant]
     Dosage: UNK UKN, UNK
  5. ALBUTEROL [Concomitant]
     Dosage: UNK UKN, UNK
  6. CALCIUM [Concomitant]
     Dosage: UNK UKN, UNK
  7. BACTRIM DS [Concomitant]
     Dosage: UNK UKN, UNK

REACTIONS (2)
  - Rash generalised [Unknown]
  - Drug ineffective [Unknown]
